FAERS Safety Report 18124216 (Version 2)
Quarter: 2021Q1

REPORT INFORMATION
  Report Type: Spontaneous
  Country: US (occurrence: US)
  Receive Date: 20200807
  Receipt Date: 20210302
  Transmission Date: 20210419
  Serious: Yes (Other)
  Sender: FDA-Public Use
  Company Number: US-ASTRAZENECA-2020SE97632

PATIENT
  Age: 68 Year
  Sex: Male
  Weight: 88.5 kg

DRUGS (59)
  1. LEVAQUIN [Concomitant]
     Active Substance: LEVOFLOXACIN
     Indication: INFECTION
  2. MAALOX ANTACID [Concomitant]
     Active Substance: ALUMINUM HYDROXIDE\DIMETHICONE\MAGNESIUM HYDROXIDE
  3. MEPERIDINE [Concomitant]
     Active Substance: MEPERIDINE
  4. DOXYCYCLINE MONOHYDRATE [Concomitant]
     Active Substance: DOXYCYCLINE
  5. KETOROLAC [Concomitant]
     Active Substance: KETOROLAC TROMETHAMINE
  6. PRILOSEC [Suspect]
     Active Substance: OMEPRAZOLE MAGNESIUM
     Indication: GASTROOESOPHAGEAL REFLUX DISEASE
     Route: 048
     Dates: start: 2000, end: 2018
  7. LISINOPRIL. [Concomitant]
     Active Substance: LISINOPRIL
     Indication: HYPERTENSION
  8. BENICAR [Concomitant]
     Active Substance: OLMESARTAN MEDOXOMIL
  9. LISINOPRIL HCTZ [Concomitant]
     Active Substance: HYDROCHLOROTHIAZIDE\LISINOPRIL
  10. FLOMAX [Concomitant]
     Active Substance: TAMSULOSIN HYDROCHLORIDE
  11. RAMIPRIL. [Concomitant]
     Active Substance: RAMIPRIL
  12. CEFUROXIME. [Concomitant]
     Active Substance: CEFUROXIME
  13. PROAIR HFA [Concomitant]
     Active Substance: ALBUTEROL SULFATE
  14. DUREZOL [Concomitant]
     Active Substance: DIFLUPREDNATE
  15. ACETAMI/CODEIN [Concomitant]
  16. HYDROCHLOROT [Concomitant]
     Active Substance: HYDROCHLOROTHIAZIDE
  17. AZELASTINE. [Concomitant]
     Active Substance: AZELASTINE HYDROCHLORIDE
  18. CLOBETASOL [Concomitant]
     Active Substance: CLOBETASOL
  19. VIRTUSSIN [Concomitant]
  20. NEXIUM [Suspect]
     Active Substance: ESOMEPRAZOLE MAGNESIUM
     Indication: GASTROOESOPHAGEAL REFLUX DISEASE
     Dosage: 40.0MG UNKNOWN
     Route: 048
     Dates: start: 2001, end: 2018
  21. NEXIUM [Suspect]
     Active Substance: ESOMEPRAZOLE MAGNESIUM
     Indication: GASTROOESOPHAGEAL REFLUX DISEASE
     Dosage: GENERIC20.0MG UNKNOWN
     Route: 065
  22. NEXIUM 24HR [Suspect]
     Active Substance: ESOMEPRAZOLE MAGNESIUM
     Indication: GASTROOESOPHAGEAL REFLUX DISEASE
     Route: 048
     Dates: start: 200909, end: 201507
  23. PRILOSEC [Suspect]
     Active Substance: OMEPRAZOLE MAGNESIUM
     Indication: GASTROOESOPHAGEAL REFLUX DISEASE
     Dosage: GENERIC20.0MG UNKNOWN
     Route: 065
  24. TUMS [Concomitant]
     Active Substance: CALCIUM CARBONATE
  25. NITROQUICK [Concomitant]
     Active Substance: NITROGLYCERIN
  26. CEPHALEXIN. [Concomitant]
     Active Substance: CEPHALEXIN
  27. DOCUSATE SODIUM. [Concomitant]
     Active Substance: DOCUSATE SODIUM
  28. METHYLPREDNISOLONE. [Concomitant]
     Active Substance: METHYLPREDNISOLONE
  29. LEVOCETIRIZINE [Concomitant]
     Active Substance: LEVOCETIRIZINE
  30. PRAVASTATIN. [Concomitant]
     Active Substance: PRAVASTATIN
  31. METRONIDAZOLE. [Concomitant]
     Active Substance: METRONIDAZOLE
  32. AZITHROMYCIN ANHYDROUS. [Concomitant]
     Active Substance: AZITHROMYCIN ANHYDROUS
     Indication: ANTIBIOTIC LEVEL
  33. SULFAMETH/ TMP [Concomitant]
     Indication: ANTIBIOTIC LEVEL
  34. A?HYDROCORT [Concomitant]
     Active Substance: HYDROCORTISONE SODIUM SUCCINATE
  35. OXYCOD/ACETAM!N [Concomitant]
  36. PREDNISONE. [Concomitant]
     Active Substance: PREDNISONE
  37. FLUOCINONIDE. [Concomitant]
     Active Substance: FLUOCINONIDE
  38. NEXIUM [Suspect]
     Active Substance: ESOMEPRAZOLE MAGNESIUM
     Indication: GASTROOESOPHAGEAL REFLUX DISEASE
     Route: 048
     Dates: start: 200909, end: 201507
  39. NEXIUM 24HR [Suspect]
     Active Substance: ESOMEPRAZOLE MAGNESIUM
     Indication: GASTROOESOPHAGEAL REFLUX DISEASE
     Dosage: 40.0MG UNKNOWN
     Route: 048
     Dates: start: 2014, end: 2018
  40. PANTOPRAZOLE [Suspect]
     Active Substance: PANTOPRAZOLE
     Indication: GASTROOESOPHAGEAL REFLUX DISEASE
     Dosage: GENERIC40.0MG UNKNOWN
     Route: 065
     Dates: start: 2018, end: 2019
  41. INDOMETHACIN. [Concomitant]
     Active Substance: INDOMETHACIN
     Indication: ANALGESIC THERAPY
  42. ALLOPURINOL. [Concomitant]
     Active Substance: ALLOPURINOL
     Indication: NEPHROLITHIASIS
  43. AMLODIPINE [Concomitant]
     Active Substance: AMLODIPINE BESYLATE
  44. LIDOCAINE. [Concomitant]
     Active Substance: LIDOCAINE
  45. GATIFLOXACIN. [Concomitant]
     Active Substance: GATIFLOXACIN
  46. CLOBEX [Concomitant]
     Active Substance: CLOBETASOL PROPIONATE
  47. ASPIRIN. [Concomitant]
     Active Substance: ASPIRIN
     Indication: CARDIAC DISORDER
  48. BENAZEPRIL [Concomitant]
     Active Substance: BENAZEPRIL HYDROCHLORIDE
  49. SELENIUM [Concomitant]
     Active Substance: SELENIUM
  50. TRIAZOLAM. [Concomitant]
     Active Substance: TRIAZOLAM
  51. NAFTIN [Concomitant]
     Active Substance: NAFTIFINE HYDROCHLORIDE
  52. METOPROLOL TARTRATE. [Concomitant]
     Active Substance: METOPROLOL TARTRATE
  53. FERROUS SULFATE. [Concomitant]
     Active Substance: FERROUS SULFATE
  54. DICLOFENAC SODIUM. [Concomitant]
     Active Substance: DICLOFENAC SODIUM
  55. CLINDAMYCIN. [Concomitant]
     Active Substance: CLINDAMYCIN
  56. COLCHICINE. [Concomitant]
     Active Substance: COLCHICINE
  57. POTASSIUM CITRATE. [Concomitant]
     Active Substance: POTASSIUM CITRATE
  58. OXYCODONE [Concomitant]
     Active Substance: OXYCODONE
  59. BENZONATATE. [Concomitant]
     Active Substance: BENZONATATE

REACTIONS (2)
  - Gastrooesophageal reflux disease [Not Recovered/Not Resolved]
  - Chronic kidney disease [Not Recovered/Not Resolved]

NARRATIVE: CASE EVENT DATE: 2017
